FAERS Safety Report 8525847 (Version 3)
Quarter: 2012Q4

REPORT INFORMATION
  Report Type: 
  Country: GB (occurrence: GB)
  Receive Date: 20120423
  Receipt Date: 20120920
  Transmission Date: 20130627
  Serious: Yes (Death, Hospitalization, Other)
  Sender: FDA-Public Use
  Company Number: GB-RANBAXY-2012RR-55566

PATIENT
  Age: 63 Year
  Sex: Male

DRUGS (11)
  1. LANSOPRAZOLE [Suspect]
     Indication: BARRETT^S OESOPHAGUS
     Dosage: 30 mg
     Route: 065
  2. LANSOPRAZOLE [Suspect]
     Indication: BARRETT^S OESOPHAGUS
     Dosage: 15 mg/day
     Route: 065
  3. LANSOPRAZOLE [Suspect]
     Indication: BARRETT^S OESOPHAGUS
     Dosage: 30 mg
     Route: 065
  4. OMEPRAZOLE [Suspect]
     Indication: OESOPHAGITIS
     Dosage: 20 mg twice daily
     Route: 065
  5. OMEPRAZOLE [Suspect]
     Indication: DUODENITIS
  6. OMEPRAZOLE [Suspect]
     Indication: OESOPHAGITIS
     Dosage: 20 mg twice daily
     Route: 065
  7. OMEPRAZOLE [Suspect]
     Indication: DUODENITIS
  8. RANITIDINE [Suspect]
     Indication: OESOPHAGITIS
     Dosage: UNK
     Route: 065
  9. RANITIDINE [Suspect]
     Indication: DUODENITIS
  10. AMLODIPINE [Concomitant]
     Indication: HYPERTENSION
     Dosage: UNK
     Route: 065
  11. SIMVASTATIN [Concomitant]
     Indication: PROPHYLAXIS
     Dosage: UNK
     Route: 065

REACTIONS (3)
  - Hypomagnesaemia [Unknown]
  - Convulsion [Unknown]
  - Lethargy [Unknown]
